FAERS Safety Report 17228318 (Version 2)
Quarter: 2020Q1

REPORT INFORMATION
  Report Type: Spontaneous
  Country: US (occurrence: US)
  Receive Date: 20200103
  Receipt Date: 20200221
  Transmission Date: 20200409
  Serious: No
  Sender: FDA-Public Use
  Company Number: US-ASTRAZENECA-2019SF77093

PATIENT
  Sex: Male
  Weight: 103.4 kg

DRUGS (3)
  1. BEVESPI AEROSPHERE [Suspect]
     Active Substance: FORMOTEROL FUMARATE\GLYCOPYRROLATE
     Dosage: 9MCG/4.8MCG, 2 PUFFS IN THE MORNING AND 2 PUFFS IN THE EVENING
     Route: 055
     Dates: start: 2019
  2. FUROSEMIDE. [Concomitant]
     Active Substance: FUROSEMIDE
  3. POTASSIUM [Concomitant]
     Active Substance: POTASSIUM

REACTIONS (6)
  - Device issue [Unknown]
  - Intentional device misuse [Not Recovered/Not Resolved]
  - Product dose omission [Unknown]
  - Dyspnoea [Not Recovered/Not Resolved]
  - Incorrect dose administered [Unknown]
  - Wrong technique in device usage process [Unknown]
